FAERS Safety Report 8274910-1 (Version None)
Quarter: 2012Q2

REPORT INFORMATION
  Report Type: 
  Country: None (occurrence: None)
  Receive Date: 20120411
  Receipt Date: 20120403
  Transmission Date: 20120825
  Serious: Yes (Other)
  Sender: FDA-Public Use
  Company Number: US-CELGENEUS-163-21880-12022532

PATIENT
  Sex: Female

DRUGS (2)
  1. REVLIMID [Suspect]
     Indication: MULTIPLE MYELOMA
     Dosage: 25 MILLIGRAM
     Route: 048
     Dates: start: 20120125
  2. VELCADE [Concomitant]
     Route: 050

REACTIONS (7)
  - ASTHMA [None]
  - PRURITUS [None]
  - ERYTHEMA [None]
  - RASH [None]
  - SINUSITIS [None]
  - DRY EYE [None]
  - PYREXIA [None]
